FAERS Safety Report 15854104 (Version 1)
Quarter: 2019Q1

REPORT INFORMATION
  Report Type: Report from Study
  Country: DE (occurrence: DE)
  Receive Date: 20190122
  Receipt Date: 20190122
  Transmission Date: 20190417
  Serious: Yes (Hospitalization)
  Sender: FDA-Public Use
  Company Number: DE-PFIZER INC-2019020679

PATIENT
  Sex: Female

DRUGS (14)
  1. SULFASALAZINE. [Suspect]
     Active Substance: SULFASALAZINE
     Dosage: 1500 MG, UNK
     Route: 065
     Dates: start: 20130905
  2. SULFASALAZINE. [Suspect]
     Active Substance: SULFASALAZINE
     Dosage: 1000 MG, UNK
     Route: 065
     Dates: start: 20141218
  3. SULFASALAZINE. [Suspect]
     Active Substance: SULFASALAZINE
     Dosage: 1500 MG, UNK
     Route: 065
     Dates: start: 20140715
  4. SULFASALAZINE. [Suspect]
     Active Substance: SULFASALAZINE
     Dosage: 2000 MG, UNK
     Route: 065
     Dates: start: 20151208
  5. SULFASALAZINE. [Suspect]
     Active Substance: SULFASALAZINE
     Dosage: 2000 MG, UNK
     Route: 065
     Dates: start: 20170718
  6. SULFASALAZINE. [Suspect]
     Active Substance: SULFASALAZINE
     Dosage: 1500 MG, UNK
     Route: 065
     Dates: start: 20130610
  7. AZATHIOPRINE. [Suspect]
     Active Substance: AZATHIOPRINE
     Dosage: 50 MG, UNK
     Route: 065
     Dates: start: 20140715
  8. AZATHIOPRINE. [Suspect]
     Active Substance: AZATHIOPRINE
     Dosage: 50 MG, UNK
     Route: 065
     Dates: start: 20141218
  9. SULFASALAZINE. [Suspect]
     Active Substance: SULFASALAZINE
     Dosage: 2000 MG, UNK
     Route: 065
     Dates: start: 20170209
  10. SULFASALAZINE. [Suspect]
     Active Substance: SULFASALAZINE
     Dosage: 1000 MG, UNK
     Route: 065
     Dates: start: 20150602
  11. CIMZIA [Suspect]
     Active Substance: CERTOLIZUMAB PEGOL
     Dosage: UNK
     Route: 065
     Dates: start: 201306, end: 201306
  12. NO SUBJECT DRUG [Suspect]
     Active Substance: UNSPECIFIED INGREDIENT
     Dosage: NO DOSE GIVEN
  13. SULFASALAZINE. [Suspect]
     Active Substance: SULFASALAZINE
     Dosage: 2000 MG, UNK
     Route: 065
     Dates: start: 20161107
  14. AZATHIOPRINE. [Suspect]
     Active Substance: AZATHIOPRINE
     Dosage: 50 MG, UNK
     Route: 065
     Dates: start: 20130905

REACTIONS (2)
  - Haemoptysis [Recovered/Resolved]
  - Cough [Unknown]

NARRATIVE: CASE EVENT DATE: 20170215
